FAERS Safety Report 6941433-9 (Version None)
Quarter: 2010Q3

REPORT INFORMATION
  Report Type: 
  Country: None (occurrence: None)
  Receive Date: 20100824
  Receipt Date: 20100824
  Transmission Date: 20110219
  Serious: Yes (Hospitalization)
  Sender: FDA-Public Use
  Company Number: None

PATIENT
  Age: 73 Year
  Sex: Male
  Weight: 64 kg

DRUGS (2)
  1. BEXAROTENE 75 MG CAPSULES EASAI, INC [Suspect]
     Indication: ACUTE MYELOID LEUKAEMIA
     Dosage: 525MG DAILY PO
     Route: 048
     Dates: start: 20100713, end: 20100809
  2. SARGRAMOSTIM 500MCG PER VIAL BAYER HEALTHCARE PHARMACEUTICALS [Suspect]
     Indication: ACUTE MYELOID LEUKAEMIA
     Dosage: 110MCG DAILY SQ
     Route: 058
     Dates: start: 20100713, end: 20100809

REACTIONS (6)
  - DYSPNOEA EXERTIONAL [None]
  - FATIGUE [None]
  - FEBRILE NEUTROPENIA [None]
  - HAEMATOCRIT DECREASED [None]
  - PAIN OF SKIN [None]
  - SKIN LESION [None]
